FAERS Safety Report 23659340 (Version 1)
Quarter: 2024Q1

REPORT INFORMATION
  Report Type: Spontaneous
  Country: US (occurrence: US)
  Receive Date: 20240321
  Receipt Date: 20240321
  Transmission Date: 20240410
  Serious: No
  Sender: FDA-Public Use
  Company Number: US-BRAEBURN-US-BRA-24-000068

PATIENT
  Sex: Male

DRUGS (2)
  1. BRIXADI [Suspect]
     Active Substance: BUPRENORPHINE
     Indication: Drug use disorder
     Dosage: 128 MILLIGRAM, SINGLE
     Route: 065
     Dates: start: 202312, end: 202312
  2. KLONOPIN [Concomitant]
     Active Substance: CLONAZEPAM
     Indication: Product used for unknown indication
     Dosage: 4 MILLIGRAM, QD
     Route: 065

REACTIONS (1)
  - Drug ineffective [Recovered/Resolved]
